FAERS Safety Report 5425327-6 (Version None)
Quarter: 2007Q3

REPORT INFORMATION
  Report Type: 
  Country: None (occurrence: None)
  Receive Date: 20070824
  Receipt Date: 20070813
  Transmission Date: 20080115
  Serious: Yes (Other)
  Sender: FDA-Public Use
  Company Number: US-SHR-US-2007-014221

PATIENT
  Age: 23 Year
  Sex: Female

DRUGS (6)
  1. BETASERON [Suspect]
     Dosage: 2 MIU, 2X/WEEK
     Route: 058
     Dates: start: 20051110, end: 20051230
  2. BETASERON [Suspect]
     Dosage: 2 MIU, EVERY 2D
     Route: 058
     Dates: start: 20070310
  3. BETASERON [Suspect]
     Dosage: 8 MIU, EVERY 2D
     Route: 058
     Dates: start: 20070310
  4. PROVIGIL [Concomitant]
     Indication: FATIGUE
     Dates: start: 20070101
  5. DEPAKOTE [Concomitant]
     Indication: HEADACHE
     Dates: start: 20070101
  6. LEXAPRO [Concomitant]
     Indication: DEPRESSION
     Dates: start: 20070101

REACTIONS (10)
  - ARTHRALGIA [None]
  - BIPOLAR DISORDER [None]
  - CONTUSION [None]
  - DRUG DOSE OMISSION [None]
  - FATIGUE [None]
  - HEADACHE [None]
  - MYALGIA [None]
  - POSTPARTUM DEPRESSION [None]
  - RASH ERYTHEMATOUS [None]
  - SUBCUTANEOUS NODULE [None]
